FAERS Safety Report 8696454 (Version 3)
Quarter: 2012Q4

REPORT INFORMATION
  Report Type: 
  Country: MX (occurrence: MX)
  Receive Date: 20120801
  Receipt Date: 20121210
  Transmission Date: 20130627
  Serious: Yes (Other)
  Sender: FDA-Public Use
  Company Number: PHHY2012MX065640

PATIENT
  Age: 67 Year
  Sex: Male

DRUGS (10)
  1. EXFORGE [Suspect]
     Indication: HYPERTENSION
     Dosage: 1 DF (160 mg vals and 5 mg amlo), UNK
     Route: 048
     Dates: start: 201202
  2. JANUMET [Concomitant]
     Indication: BLOOD GLUCOSE INCREASED
     Dosage: 2 DF, per day
     Dates: start: 201203
  3. JANUMET [Concomitant]
     Indication: HYPERTENSION
  4. INSULIN [Concomitant]
     Indication: DIABETES MELLITUS
     Dosage: 52 IU, daily
     Dates: start: 2006
  5. INSULIN [Concomitant]
     Indication: BLOOD GLUCOSE ABNORMAL
  6. METOPROLOL [Concomitant]
     Indication: HYPERTENSION
     Dosage: 0.5 DF, UNK
     Dates: start: 2002
  7. METOPROLOL [Concomitant]
     Indication: BLOOD PRESSURE ABNORMAL
  8. AUTRIN [Concomitant]
     Indication: ANAEMIA
     Dosage: 1 DF, per day
     Dates: start: 201206
  9. ASPIRIN PROTECT [Concomitant]
     Dosage: 1 DF, UNK
     Dates: start: 2008
  10. GLIMEPERIDINE/METFORMIN [Concomitant]
     Indication: DIABETES MELLITUS
     Dosage: 2 UKN, UNK
     Dates: start: 201210

REACTIONS (6)
  - Pseudomonas infection [Not Recovered/Not Resolved]
  - Pyrexia [Not Recovered/Not Resolved]
  - Prostatitis [Not Recovered/Not Resolved]
  - Blood glucose increased [Not Recovered/Not Resolved]
  - Urinary tract infection [Recovered/Resolved]
  - Arthralgia [Not Recovered/Not Resolved]
